FAERS Safety Report 24433757 (Version 1)
Quarter: 2024Q4

REPORT INFORMATION
  Report Type: Report from Study
  Country: US (occurrence: US)
  Receive Date: 20241014
  Receipt Date: 20241014
  Transmission Date: 20250115
  Serious: Yes (Other)
  Sender: UCB
  Company Number: US-UCBSA-2024051455

PATIENT

DRUGS (1)
  1. MIDAZOLAM [Suspect]
     Active Substance: MIDAZOLAM
     Indication: Sedation
     Dosage: UNK

REACTIONS (4)
  - Aspiration [Unknown]
  - Vomiting [Unknown]
  - Hypersensitivity [Unknown]
  - Laryngospasm [Unknown]
